FAERS Safety Report 19067609 (Version 6)
Quarter: 2022Q4

REPORT INFORMATION
  Report Type: Spontaneous
  Country: JP (occurrence: JP)
  Receive Date: 20210329
  Receipt Date: 20221117
  Transmission Date: 20230113
  Serious: Yes (Death)
  Sender: FDA-Public Use
  Company Number: JP-JNJFOC-20210353629

PATIENT
  Age: 6 Year
  Sex: Male
  Weight: 23 kg

DRUGS (47)
  1. OPSUMIT [Suspect]
     Active Substance: MACITENTAN
     Indication: Pulmonary arterial hypertension
     Dosage: IN THE MORNING
     Route: 048
     Dates: start: 20160616, end: 20210316
  2. OPSUMIT [Suspect]
     Active Substance: MACITENTAN
     Route: 048
  3. UPTRAVI [Suspect]
     Active Substance: SELEXIPAG
     Indication: Pulmonary hypertension
     Dosage: 0.2 MG (0.1 MG/12 HOURS)
     Route: 048
     Dates: start: 20180813, end: 20180911
  4. UPTRAVI [Suspect]
     Active Substance: SELEXIPAG
     Route: 048
     Dates: start: 20180912, end: 20181113
  5. UPTRAVI [Suspect]
     Active Substance: SELEXIPAG
     Dosage: 0.6 MG (0.3 MG/12 HOURS)
     Route: 048
     Dates: start: 20181114, end: 20181218
  6. UPTRAVI [Suspect]
     Active Substance: SELEXIPAG
     Route: 048
     Dates: start: 20181219, end: 20190217
  7. UPTRAVI [Suspect]
     Active Substance: SELEXIPAG
     Route: 048
     Dates: start: 20190218, end: 20190402
  8. UPTRAVI [Suspect]
     Active Substance: SELEXIPAG
     Route: 048
     Dates: start: 20190403, end: 20190702
  9. UPTRAVI [Suspect]
     Active Substance: SELEXIPAG
     Route: 048
     Dates: start: 20190703, end: 20190717
  10. UPTRAVI [Suspect]
     Active Substance: SELEXIPAG
     Route: 048
     Dates: start: 20190729, end: 20190829
  11. UPTRAVI [Suspect]
     Active Substance: SELEXIPAG
     Route: 048
     Dates: start: 20190830, end: 20191125
  12. UPTRAVI [Suspect]
     Active Substance: SELEXIPAG
     Route: 048
     Dates: start: 20191126, end: 20200106
  13. UPTRAVI [Suspect]
     Active Substance: SELEXIPAG
     Route: 048
     Dates: start: 20200107, end: 20200626
  14. ADCIRCA [Suspect]
     Active Substance: TADALAFIL
     Indication: Pulmonary arterial hypertension
     Route: 048
     Dates: start: 20160518
  15. ADCIRCA [Suspect]
     Active Substance: TADALAFIL
     Route: 048
     Dates: start: 20191125
  16. ADCIRCA [Suspect]
     Active Substance: TADALAFIL
     Route: 048
     Dates: start: 20191124
  17. OXYGEN [Concomitant]
     Active Substance: OXYGEN
     Dosage: DOSE UNKNOWN
     Route: 055
  18. FUROSEMIDE [Concomitant]
     Active Substance: FUROSEMIDE
     Indication: Cardiac failure
     Route: 048
  19. FUROSEMIDE [Concomitant]
     Active Substance: FUROSEMIDE
     Route: 048
     Dates: start: 20191222
  20. FUROSEMIDE [Concomitant]
     Active Substance: FUROSEMIDE
     Route: 048
     Dates: start: 20191223
  21. SPIRONOLACTONE [Concomitant]
     Active Substance: SPIRONOLACTONE
     Indication: Cardiac failure
     Route: 048
  22. SPIRONOLACTONE [Concomitant]
     Active Substance: SPIRONOLACTONE
     Route: 048
     Dates: start: 20191222
  23. SPIRONOLACTONE [Concomitant]
     Active Substance: SPIRONOLACTONE
     Route: 048
     Dates: start: 20191223
  24. PIMOBENDAN [Concomitant]
     Active Substance: PIMOBENDAN
     Indication: Cardiac failure
     Route: 048
  25. PIMOBENDAN [Concomitant]
     Active Substance: PIMOBENDAN
     Route: 048
     Dates: start: 20191029
  26. PIMOBENDAN [Concomitant]
     Active Substance: PIMOBENDAN
     Route: 048
     Dates: start: 20191030, end: 20191201
  27. PIMOBENDAN [Concomitant]
     Active Substance: PIMOBENDAN
     Route: 048
     Dates: start: 20191202
  28. CARVEDILOL [Concomitant]
     Active Substance: CARVEDILOL
     Indication: Cardiac failure
     Route: 048
     Dates: end: 20160811
  29. CARVEDILOL [Concomitant]
     Active Substance: CARVEDILOL
     Indication: Cardiac failure
     Route: 048
     Dates: start: 20160812, end: 20160906
  30. CARVEDILOL [Concomitant]
     Active Substance: CARVEDILOL
     Indication: Cardiac failure
     Route: 048
     Dates: start: 20160907
  31. CARVEDILOL [Concomitant]
     Active Substance: CARVEDILOL
     Route: 048
     Dates: start: 20200423
  32. CARVEDILOL [Concomitant]
     Active Substance: CARVEDILOL
     Route: 048
     Dates: start: 20200424
  33. ISOSORBIDE DINITRATE [Concomitant]
     Active Substance: ISOSORBIDE DINITRATE
     Indication: Cardiac failure
     Dosage: 3/4 SHEET
     Route: 062
  34. ISOSORBIDE DINITRATE [Concomitant]
     Active Substance: ISOSORBIDE DINITRATE
     Dosage: 0.75 DF
     Route: 062
  35. ENALAPRIL MALEATE [Concomitant]
     Active Substance: ENALAPRIL MALEATE
     Indication: Cardiac failure
     Route: 048
     Dates: start: 20190507
  36. ENALAPRIL MALEATE [Concomitant]
     Active Substance: ENALAPRIL MALEATE
     Route: 048
     Dates: start: 20190508, end: 20200402
  37. ENALAPRIL MALEATE [Concomitant]
     Active Substance: ENALAPRIL MALEATE
     Route: 048
     Dates: start: 20200403
  38. WARFARIN POTASSIUM [Concomitant]
     Active Substance: WARFARIN POTASSIUM
     Indication: Thrombosis prophylaxis
     Route: 048
  39. ASPIRIN [Concomitant]
     Active Substance: ASPIRIN
     Indication: Thrombosis prophylaxis
     Route: 048
  40. ASPIRIN [Concomitant]
     Active Substance: ASPIRIN
     Route: 048
  41. WIDECILLIN [AMOXICILLIN TRIHYDRATE] [Concomitant]
     Indication: Bronchitis
     Dates: start: 20190601, end: 20190605
  42. ASVERIN (TIPEPIDINE HIBENZATE) [Concomitant]
     Active Substance: TIPEPIDINE HIBENZATE
     Indication: Bronchitis
     Dates: start: 20190601, end: 20190605
  43. CARBOCYSTEINE [Concomitant]
     Active Substance: CARBOCYSTEINE
     Indication: Bronchitis
     Dates: start: 20190601, end: 20190605
  44. DIETARY SUPPLEMENT\PROBIOTICS [Concomitant]
     Active Substance: DIETARY SUPPLEMENT\PROBIOTICS
     Indication: Gastroenteritis
     Dates: start: 20190601, end: 20190605
  45. TRICHLORMETHIAZIDE [Concomitant]
     Active Substance: TRICHLORMETHIAZIDE
     Dates: start: 20200402, end: 20200408
  46. TRICHLORMETHIAZIDE [Concomitant]
     Active Substance: TRICHLORMETHIAZIDE
     Dates: start: 20200409, end: 20200607
  47. TRICHLORMETHIAZIDE [Concomitant]
     Active Substance: TRICHLORMETHIAZIDE
     Dates: start: 20200608

REACTIONS (7)
  - Cardiac failure [Fatal]
  - Off label use [Unknown]
  - Product use issue [Unknown]
  - Diarrhoea [Recovered/Resolved]
  - Headache [Recovered/Resolved]
  - Product administered to patient of inappropriate age [Unknown]
  - Nausea [Recovered/Resolved]

NARRATIVE: CASE EVENT DATE: 20160616
